FAERS Safety Report 22687065 (Version 3)
Quarter: 2025Q3

REPORT INFORMATION
  Report Type: Report from Study
  Country: US (occurrence: US)
  Receive Date: 20230710
  Receipt Date: 20250831
  Transmission Date: 20251020
  Serious: No
  Sender: NOVARTIS
  Company Number: US-002147023-NVSC2023US152995

PATIENT
  Sex: Male
  Weight: 138.35 kg

DRUGS (13)
  1. CARBAMAZEPINE [Suspect]
     Active Substance: CARBAMAZEPINE
     Indication: Psoriasis
     Route: 065
  2. VALSARTAN [Suspect]
     Active Substance: VALSARTAN
     Indication: Psoriasis
     Route: 065
  3. ALLOPURINOL [Suspect]
     Active Substance: ALLOPURINOL
     Indication: Psoriasis
     Route: 065
  4. HYDROCHLOROTHIAZIDE [Suspect]
     Active Substance: HYDROCHLOROTHIAZIDE
     Indication: Psoriasis
     Route: 065
  5. TAMSULOSIN [Suspect]
     Active Substance: TAMSULOSIN
     Indication: Psoriasis
     Route: 065
  6. CLOBETASOL [Suspect]
     Active Substance: CLOBETASOL
     Indication: Psoriasis
     Route: 065
  7. ALBUTEROL [Suspect]
     Active Substance: ALBUTEROL
     Indication: Psoriasis
     Route: 065
  8. FLUTICASONE PROPIONATE [Suspect]
     Active Substance: FLUTICASONE PROPIONATE
     Indication: Psoriasis
     Route: 065
  9. VITAMINS [Suspect]
     Active Substance: VITAMINS
     Indication: Psoriasis
     Route: 065
  10. CALCIUM [Suspect]
     Active Substance: CALCIUM
     Indication: Psoriasis
     Route: 065
  11. DULOXETINE [Suspect]
     Active Substance: DULOXETINE
     Indication: Psoriasis
     Route: 065
  12. FEXOFENADINE [Suspect]
     Active Substance: FEXOFENADINE HYDROCHLORIDE
     Indication: Psoriasis
     Route: 065
  13. TADALAFIL [Suspect]
     Active Substance: TADALAFIL
     Indication: Psoriasis
     Route: 065

REACTIONS (12)
  - Psoriasis [Unknown]
  - Rash pruritic [Unknown]
  - Blood alkaline phosphatase increased [Unknown]
  - Blood sodium increased [Unknown]
  - Glomerular filtration rate decreased [Unknown]
  - Blood creatinine increased [Unknown]
  - Blood glucose increased [Unknown]
  - Monocyte count increased [Unknown]
  - Mean cell haemoglobin concentration increased [Unknown]
  - Haemoglobin decreased [Unknown]
  - Drug ineffective for unapproved indication [Unknown]
  - Product use in unapproved indication [Unknown]
